FAERS Safety Report 4602176-X (Version None)
Quarter: 2005Q1

REPORT INFORMATION
  Report Type: 
  Country: None (occurrence: None)
  Receive Date: 20050214
  Receipt Date: 20040827
  Transmission Date: 20050727
  Serious: Yes (Other)
  Sender: FDA-Public Use
  Company Number: PHEH2004US09364

PATIENT
  Age: 48 Year
  Sex: Female

DRUGS (4)
  1. TEGRETOL [Suspect]
     Indication: EPILEPSY
     Dosage: 400 MG, BID, ORAL
     Route: 048
     Dates: end: 20040825
  2. ZARONTIN [Concomitant]
  3. LOTREL [Concomitant]
  4. EFFEXOR [Concomitant]

REACTIONS (1)
  - HYPONATRAEMIA [None]
